FAERS Safety Report 9693354 (Version 2)
Quarter: 2013Q4

REPORT INFORMATION
  Report Type: Spontaneous
  Country: JP (occurrence: JP)
  Receive Date: 20131118
  Receipt Date: 20131231
  Transmission Date: 20140711
  Serious: No
  Sender: FDA-Public Use
  Company Number: JP-PFIZER INC-2013322827

PATIENT
  Age: 34 Month
  Sex: 0

DRUGS (1)
  1. REVATIO [Suspect]
     Dosage: 6 MG, 1X/DAY
     Route: 048

REACTIONS (2)
  - Infection [Unknown]
  - Cell marker increased [Recovered/Resolved]
